FAERS Safety Report 24157522 (Version 1)
Quarter: 2024Q3

REPORT INFORMATION
  Report Type: Report from Study
  Country: US (occurrence: US)
  Receive Date: 20240731
  Receipt Date: 20240731
  Transmission Date: 20241017
  Serious: Yes (Hospitalization, Other)
  Sender: BAYER
  Company Number: US-BAYER-2024A104268

PATIENT
  Age: 75 Year
  Sex: Male
  Weight: 75.283 kg

DRUGS (24)
  1. ADEMPAS [Suspect]
     Active Substance: RIOCIGUAT
     Indication: Pulmonary arterial hypertension
     Dosage: UNK
     Dates: start: 20240221
  2. ADEMPAS [Suspect]
     Active Substance: RIOCIGUAT
     Indication: Pulmonary arterial hypertension
     Dosage: UNK
     Dates: start: 20240503
  3. ADEMPAS [Suspect]
     Active Substance: RIOCIGUAT
     Indication: Pulmonary arterial hypertension
     Dosage: 1.5 MG, TID
     Route: 048
  4. ADEMPAS [Suspect]
     Active Substance: RIOCIGUAT
     Indication: Pulmonary arterial hypertension
     Dosage: 1 MG, TID
  5. FUROSEMIDE [Concomitant]
     Active Substance: FUROSEMIDE
  6. TIZANIDINE HYDROCHLORIDE [Concomitant]
     Active Substance: TIZANIDINE HYDROCHLORIDE
  7. TAMSULOSIN HYDROCHLORIDE [Concomitant]
     Active Substance: TAMSULOSIN HYDROCHLORIDE
  8. POTASSIUM CHLORIDE [Concomitant]
     Active Substance: POTASSIUM CHLORIDE
  9. PANTOPRAZOLE SODIUM [Concomitant]
     Active Substance: PANTOPRAZOLE SODIUM
  10. LIDOCAINE [Concomitant]
     Active Substance: LIDOCAINE
  11. VITAMIN E [Concomitant]
     Active Substance: .ALPHA.-TOCOPHEROL
  12. ALLOPURINOL [Concomitant]
     Active Substance: ALLOPURINOL
  13. ALBUTEROL SULFATE [Concomitant]
     Active Substance: ALBUTEROL SULFATE
  14. PHENAZOPYRIDINE [Concomitant]
     Active Substance: PHENAZOPYRIDINE
  15. FINASTERIDE [Concomitant]
     Active Substance: FINASTERIDE
  16. ROSUVASTATIN CALCIUM [Concomitant]
     Active Substance: ROSUVASTATIN CALCIUM
  17. VITAMINS [Concomitant]
     Active Substance: VITAMINS
  18. XARELTO [Concomitant]
     Active Substance: RIVAROXABAN
  19. OXYGEN [Concomitant]
     Active Substance: OXYGEN
  20. COLCHICINE [Concomitant]
     Active Substance: COLCHICINE
  21. IRON [Concomitant]
     Active Substance: IRON
  22. OXYCODONE AND ACETAMINOPHEN [Concomitant]
     Active Substance: ACETAMINOPHEN\OXYCODONE HYDROCHLORIDE
  23. FASENRA [Concomitant]
     Active Substance: BENRALIZUMAB
  24. DEXTROMETHORPHAN\GUAIFENESIN [Concomitant]
     Active Substance: DEXTROMETHORPHAN\GUAIFENESIN

REACTIONS (5)
  - Dyspnoea [None]
  - Syncope [None]
  - Skin infection [None]
  - Dizziness [None]
  - Headache [Recovered/Resolved]

NARRATIVE: CASE EVENT DATE: 20240712
